FAERS Safety Report 14255594 (Version 1)
Quarter: 2017Q4

REPORT INFORMATION
  Report Type: Spontaneous
  Country: US (occurrence: None)
  Receive Date: 20171206
  Receipt Date: 20171206
  Transmission Date: 20180321
  Serious: Yes (Death)
  Sender: FDA-Public Use
  Company Number: None

PATIENT
  Age: 6 Month
  Sex: Male

DRUGS (3)
  1. LEVALBUTEROL. [Concomitant]
     Active Substance: LEVALBUTEROL
  2. BUDESONIDE. [Concomitant]
     Active Substance: BUDESONIDE
  3. SYNAGIS [Suspect]
     Active Substance: PALIVIZUMAB
     Indication: PRODUCT USED FOR UNKNOWN INDICATION
     Dates: start: 20110107, end: 20110108

REACTIONS (3)
  - Cardiac disorder [None]
  - Kidney enlargement [None]
  - Respiratory failure [None]

NARRATIVE: CASE EVENT DATE: 20110108
